FAERS Safety Report 6124902-3 (Version None)
Quarter: 2009Q1

REPORT INFORMATION
  Report Type: 
  Country: None (occurrence: None)
  Receive Date: 20090319
  Receipt Date: 20090317
  Transmission Date: 20090719
  Serious: No
  Sender: FDA-Public Use
  Company Number: US-B.I. PHARMACEUTICALS,INC./RIDGEFIELD-2009-BP-01161BP

PATIENT
  Sex: Female

DRUGS (7)
  1. SPIRIVA [Suspect]
     Indication: CHRONIC OBSTRUCTIVE PULMONARY DISEASE
     Dosage: 18MCG
     Route: 055
     Dates: start: 20090101
  2. SPIRIVA [Suspect]
     Indication: ASTHMA
  3. TOPROL-XL [Concomitant]
     Indication: HYPERTENSION
  4. WATER PILL [Concomitant]
     Indication: HYPERTENSION
  5. FOSAMAX [Concomitant]
     Indication: BONE DISORDER
  6. ALLOPURINOL [Concomitant]
     Indication: ARTHRITIS
  7. ALLOPURINOL [Concomitant]
     Indication: GOUT

REACTIONS (5)
  - BLOOD CHOLESTEROL INCREASED [None]
  - DRUG INEFFECTIVE [None]
  - DYSPHAGIA [None]
  - DYSPHONIA [None]
  - DYSPNOEA [None]
